FAERS Safety Report 25949274 (Version 1)
Quarter: 2025Q4

REPORT INFORMATION
  Report Type: Spontaneous
  Country: EU (occurrence: EU)
  Receive Date: 20251022
  Receipt Date: 20251022
  Transmission Date: 20260118
  Serious: Yes (Other)
  Sender: NOVARTIS
  Company Number: EU-002147023-NVSC2025PL162284

PATIENT
  Age: 73 Year
  Sex: Male

DRUGS (4)
  1. TOBRAMYCIN [Suspect]
     Active Substance: TOBRAMYCIN
     Indication: SJS-TEN overlap
     Dosage: EYE DROPS; 5 TIMES A DAY
     Route: 065
  2. CYCLOSPORINE [Suspect]
     Active Substance: CYCLOSPORINE
     Indication: SJS-TEN overlap
     Dosage: UNK UNK, BID
     Route: 065
  3. DEXAMETHASONE [Suspect]
     Active Substance: DEXAMETHASONE
     Indication: SJS-TEN overlap
     Dosage: EYE DROPS; 5 TIMES A DAY
     Route: 065
  4. PREDNISONE [Suspect]
     Active Substance: PREDNISONE
     Indication: SJS-TEN overlap
     Dosage: 60 MG, QD
     Route: 048

REACTIONS (4)
  - Keratitis [Unknown]
  - Eyelid exfoliation [Unknown]
  - Conjunctivitis [Unknown]
  - Drug ineffective for unapproved indication [Unknown]
